FAERS Safety Report 23555558 (Version 1)
Quarter: 2024Q1

REPORT INFORMATION
  Report Type: Spontaneous
  Country: US (occurrence: US)
  Receive Date: 20240222
  Receipt Date: 20240222
  Transmission Date: 20240410
  Serious: Yes (Other)
  Sender: FDA-Public Use
  Company Number: US-LANTHEUS-LMI-2023-00452

PATIENT
  Sex: Female

DRUGS (1)
  1. DEFINITY RT [Suspect]
     Active Substance: PERFLUTREN
     Indication: Echocardiogram
     Dosage: UNK
     Route: 042
     Dates: start: 20230414, end: 20230414

REACTIONS (7)
  - Blood pressure increased [Recovering/Resolving]
  - Muscle spasms [Recovering/Resolving]
  - Pallor [Recovering/Resolving]
  - Restlessness [Recovering/Resolving]
  - Paraesthesia [Recovering/Resolving]
  - Chest pain [Recovering/Resolving]
  - Back pain [Recovering/Resolving]

NARRATIVE: CASE EVENT DATE: 20230414
